FAERS Safety Report 13052081 (Version 2)
Quarter: 2017Q1

REPORT INFORMATION
  Report Type: Spontaneous
  Country: RU (occurrence: RU)
  Receive Date: 20161221
  Receipt Date: 20170126
  Transmission Date: 20170428
  Serious: Yes (Death, Hospitalization, Congenital Anomaly, Other)
  Sender: FDA-Public Use
  Company Number: RU-BAYER-2016-235571

PATIENT
  Sex: Female
  Weight: 1.6 kg

DRUGS (2)
  1. YARINA [Suspect]
     Active Substance: DROSPIRENONE\ETHINYL ESTRADIOL
     Indication: CONTRACEPTION
     Dosage: UNK
     Route: 064
     Dates: start: 2011, end: 2014
  2. YARINA [Suspect]
     Active Substance: DROSPIRENONE\ETHINYL ESTRADIOL
     Indication: OVARIAN RUPTURE

REACTIONS (6)
  - Low birth weight baby [None]
  - Foetal distress syndrome [None]
  - Exposure during pregnancy [None]
  - Trisomy 13 [Fatal]
  - Heart disease congenital [None]
  - Premature baby [None]
